FAERS Safety Report 21738347 (Version 1)
Quarter: 2022Q4

REPORT INFORMATION
  Report Type: Spontaneous
  Country: US (occurrence: US)
  Receive Date: 20221216
  Receipt Date: 20221216
  Transmission Date: 20230113
  Serious: No
  Sender: FDA-Public Use
  Company Number: US-BRISTOL-MYERS SQUIBB COMPANY-2022-153000

PATIENT
  Age: 73 Year
  Sex: Female
  Weight: 54.4 kg

DRUGS (1)
  1. LENALIDOMIDE [Suspect]
     Active Substance: LENALIDOMIDE
     Indication: Plasma cell myeloma
     Dosage: FREQ: EVERY OTHER DAY
     Route: 048

REACTIONS (3)
  - Diarrhoea [Unknown]
  - Oedema peripheral [Unknown]
  - Muscle spasms [Unknown]
